FAERS Safety Report 17276692 (Version 1)
Quarter: 2020Q1

REPORT INFORMATION
  Report Type: Spontaneous
  Country: GB (occurrence: GB)
  Receive Date: 20200116
  Receipt Date: 20200116
  Transmission Date: 20200409
  Serious: Yes (Other)
  Sender: FDA-Public Use
  Company Number: GB-TEVA-2020-GB-1167701

PATIENT
  Age: 72 Year
  Sex: Female
  Weight: 90 kg

DRUGS (21)
  1. ZEBETA [Suspect]
     Active Substance: BISOPROLOL FUMARATE
     Dosage: 2 MORNING AND ONE NIGHT. 3.75 MG
     Dates: start: 20190917
  2. GLYCERYL TRINITRATE [Concomitant]
     Active Substance: NITROGLYCERIN
     Indication: ANGINA PECTORIS
     Dosage: FOR ANGINA PAIN. SPRAY ONE OR TWO DOSES UNDER T...
     Dates: start: 20191008
  3. FOLIC ACID. [Concomitant]
     Active Substance: FOLIC ACID
     Dosage: EXCEPT FOR METHOTRXATE DAY. 1 DOSAGE FORMS
     Dates: start: 20190803
  4. INHALER [Concomitant]
     Active Substance: UNSPECIFIED INGREDIENT
     Dosage: 2 DOSAGE FORMS
     Route: 055
     Dates: start: 20190416
  5. SUKKARTO [Concomitant]
     Active Substance: METFORMIN HYDROCHLORIDE
     Dosage: 2 DOSAGE FORMS
     Dates: start: 20190416
  6. SALBUTAMOL [Concomitant]
     Active Substance: ALBUTEROL
     Dosage: 2 DOSAGE FORMS
     Route: 055
     Dates: start: 20190923
  7. OMEPRAZOLE. [Concomitant]
     Active Substance: OMEPRAZOLE
     Dosage: TAKE TWO DAILY
     Dates: start: 20190416
  8. METHOTREXATE. [Concomitant]
     Active Substance: METHOTREXATE
     Dosage: PEN: USE AS DIRECTED
     Dates: start: 20190918
  9. HUMALOG [Concomitant]
     Active Substance: INSULIN LISPRO
     Dosage: USE AS DIRECTED
     Dates: start: 20190416
  10. CETIRIZINE [Concomitant]
     Active Substance: CETIRIZINE HYDROCHLORIDE
     Dosage: 1 DOSAGE FORMS
     Dates: start: 20190416
  11. AMOXICILLIN. [Concomitant]
     Active Substance: AMOXICILLIN
     Dosage: 3 DOSAGE FORMS
     Dates: start: 20191129, end: 20191204
  12. FLUAD NOS [Concomitant]
     Active Substance: INFLUENZA VIRUS VACCINE
     Dates: start: 20191005, end: 20191006
  13. PREDNISOLONE. [Concomitant]
     Active Substance: PREDNISOLONE
     Indication: ASTHMA
     Dosage: 8 DOSAGE FORMS
     Dates: start: 20191129
  14. COCODAMOL [Concomitant]
     Active Substance: ACETAMINOPHEN\CODEINE PHOSPHATE
     Dosage: 1-2 TO BE TAKEN FOUR TIMES DAILY
     Dates: start: 20191008, end: 20191105
  15. LINAGLIPTIN [Concomitant]
     Active Substance: LINAGLIPTIN
     Dosage: 1ST LINE GLIPTIN (IF CREATININE CLEARANCE {50ML/MIN). TAKE ONE ...
     Dates: start: 20190416
  16. EZETIMIBE. [Concomitant]
     Active Substance: EZETIMIBE
     Dosage: 1 DOSAGE FORMS
     Dates: start: 20190416
  17. AMLODIPINE [Concomitant]
     Active Substance: AMLODIPINE BESYLATE
     Dosage: MORNING 1  DOSAGE FORMS
     Dates: start: 20191119
  18. TICAGRELOR. [Concomitant]
     Active Substance: TICAGRELOR
     Dosage: 2 DOSAGE FORMS
     Dates: start: 20190923
  19. ACETYLSALICYLIC ACID [Concomitant]
     Active Substance: ASPIRIN
     Dosage: 1 DOSAGE FORMS
     Dates: start: 20190416
  20. DILTIAZEM. [Concomitant]
     Active Substance: DILTIAZEM
     Dosage: 2 DOSAGE FORMS
     Dates: start: 20191205
  21. CANDESARTAN. [Concomitant]
     Active Substance: CANDESARTAN
     Dosage: 1 DOSAGE FORMS
     Dates: start: 20190416

REACTIONS (3)
  - Condition aggravated [Unknown]
  - Dyspnoea [Unknown]
  - Wheezing [Recovering/Resolving]

NARRATIVE: CASE EVENT DATE: 20191209
